FAERS Safety Report 10034069 (Version 2)
Quarter: 2014Q1

REPORT INFORMATION
  Report Type: Report from Study
  Country: ZA (occurrence: ZA)
  Receive Date: 20140325
  Receipt Date: 20140326
  Transmission Date: 20141002
  Serious: Yes (Hospitalization, Disabling)
  Sender: FDA-Public Use
  Company Number: ZA-BAYER-2014-038051

PATIENT
  Age: 50 Year
  Sex: Female

DRUGS (1)
  1. BETAFERON [Suspect]
     Indication: RELAPSING-REMITTING MULTIPLE SCLEROSIS
     Dosage: 8 MIU, QOD
     Route: 058
     Dates: start: 20140301

REACTIONS (8)
  - Arthralgia [Not Recovered/Not Resolved]
  - Mobility decreased [Not Recovered/Not Resolved]
  - Bedridden [None]
  - Negative thoughts [None]
  - Anxiety [None]
  - Nausea [None]
  - Alopecia [None]
  - Headache [None]
